FAERS Safety Report 6290166-3 (Version None)
Quarter: 2009Q3

REPORT INFORMATION
  Report Type: 
  Country: None (occurrence: None)
  Receive Date: 20090730
  Receipt Date: 20081223
  Transmission Date: 20100115
  Serious: No
  Sender: FDA-Public Use
  Company Number: US-BRISTOL-MYERS SQUIBB COMPANY-14454102

PATIENT
  Sex: Male
  Weight: 73 kg

DRUGS (7)
  1. COUMADIN [Suspect]
  2. NON-MEDICINAL PRODUCT [Interacting]
  3. LYRICA [Concomitant]
  4. ASPIRIN [Concomitant]
  5. FLOMAX [Concomitant]
  6. PRILOSEC [Concomitant]
  7. NUTRITIONAL SUPPLEMENT [Concomitant]

REACTIONS (2)
  - FOOD INTERACTION [None]
  - INTERNATIONAL NORMALISED RATIO DECREASED [None]
